FAERS Safety Report 12632167 (Version 3)
Quarter: 2016Q3

REPORT INFORMATION
  Report Type: Spontaneous
  Country: US (occurrence: US)
  Receive Date: 20160808
  Receipt Date: 20160824
  Transmission Date: 20161109
  Serious: No
  Sender: FDA-Public Use
  Company Number: US-BEH-2016062065

PATIENT
  Sex: Female
  Weight: 111.13 kg

DRUGS (22)
  1. LASIX [Concomitant]
     Active Substance: FUROSEMIDE
  2. CRESTOR [Concomitant]
     Active Substance: ROSUVASTATIN CALCIUM
  3. ACETAMINOPHEN. [Concomitant]
     Active Substance: ACETAMINOPHEN
  4. LEVOTHYROXINE. [Concomitant]
     Active Substance: LEVOTHYROXINE
  5. ATIVAN [Concomitant]
     Active Substance: LORAZEPAM
  6. PROZAC [Concomitant]
     Active Substance: FLUOXETINE HYDROCHLORIDE
  7. ZANTAC [Concomitant]
     Active Substance: RANITIDINE HYDROCHLORIDE
  8. OMEPRAZOLE. [Concomitant]
     Active Substance: OMEPRAZOLE
  9. LOSARTAN. [Concomitant]
     Active Substance: LOSARTAN
  10. LIDOCAINE. [Concomitant]
     Active Substance: LIDOCAINE
  11. EPIPEN [Concomitant]
     Active Substance: EPINEPHRINE
  12. RANITIDINE. [Concomitant]
     Active Substance: RANITIDINE
  13. POTASSIUM [Concomitant]
     Active Substance: POTASSIUM
  14. CENTRUM SILVER [Concomitant]
     Active Substance: MINERALS\VITAMINS
  15. CARVEDILOL. [Concomitant]
     Active Substance: CARVEDILOL
  16. SEROQUEL [Concomitant]
     Active Substance: QUETIAPINE FUMARATE
  17. SYMBICORT [Concomitant]
     Active Substance: BUDESONIDE\FORMOTEROL FUMARATE DIHYDRATE
  18. FERROUS SULFATE. [Concomitant]
     Active Substance: FERROUS SULFATE
  19. HIZENTRA [Suspect]
     Active Substance: HUMAN IMMUNOGLOBULIN G
     Indication: IMMUNODEFICIENCY COMMON VARIABLE
     Dosage: AS DIRECTED
     Route: 058
     Dates: start: 20131118
  20. DIPHENHYDRAMINE. [Concomitant]
     Active Substance: DIPHENHYDRAMINE
  21. COLCHICINE. [Concomitant]
     Active Substance: COLCHICINE
  22. PROAIR HFA [Concomitant]
     Active Substance: ALBUTEROL SULFATE

REACTIONS (1)
  - Bronchitis [Unknown]
